FAERS Safety Report 6839619-7 (Version None)
Quarter: 2010Q3

REPORT INFORMATION
  Report Type: 
  Country: None (occurrence: None)
  Receive Date: 20100714
  Receipt Date: 20100706
  Transmission Date: 20110219
  Serious: Yes (Other)
  Sender: FDA-Public Use
  Company Number: US-ELI_LILLY_AND_COMPANY-US201005006546

PATIENT
  Sex: Female

DRUGS (9)
  1. BYETTA [Suspect]
     Dosage: 10 UG, UNKNOWN
     Route: 058
     Dates: start: 20091026
  2. CYMBALTA [Concomitant]
     Dosage: 100 MG, DAILY (1/D)
     Dates: start: 20091203
  3. AMITIZA [Concomitant]
     Dosage: 24 MG, 2/D
     Dates: start: 20081005
  4. PREVACID [Concomitant]
     Dosage: 30 MG, DAILY (1/D)
     Dates: start: 20080930
  5. LEVOTHYROXINE SODIUM [Concomitant]
     Dosage: 125 UG, DAILY (1/D)
     Dates: start: 20081111
  6. LUNESTA [Concomitant]
     Dosage: 3 MG, EACH EVENING
     Dates: start: 20091002
  7. SKELAXIN [Concomitant]
     Dosage: 800 MG, 3/D
     Dates: start: 20100201
  8. MS CONTIN [Concomitant]
     Dosage: UNK, AS NEEDED
     Dates: start: 20100107
  9. OXYCODONE HCL [Concomitant]

REACTIONS (3)
  - GENERAL PHYSICAL HEALTH DETERIORATION [None]
  - MALAISE [None]
  - NEOPLASM [None]
